FAERS Safety Report 4473122-7 (Version None)
Quarter: 2004Q4

REPORT INFORMATION
  Report Type: 
  Country: None (occurrence: None)
  Receive Date: 20041008
  Receipt Date: 20040929
  Transmission Date: 20050328
  Serious: Yes (Hospitalization)
  Sender: FDA-Public Use
  Company Number: DE-2004-032788

PATIENT
  Age: 63 Year
  Sex: Female

DRUGS (1)
  1. BETAFERON(INTERFERON BETA-1B) INJECTION, 250UG [Suspect]
     Dosage: SUBCUTANEOUS
     Route: 058
     Dates: start: 20010201

REACTIONS (6)
  - GINGIVITIS [None]
  - INJECTION SITE CELLULITIS [None]
  - INJECTION SITE INDURATION [None]
  - INJECTION SITE INFLAMMATION [None]
  - PERITONITIS [None]
  - URINARY TRACT INFECTION [None]
